FAERS Safety Report 25325758 (Version 2)
Quarter: 2025Q2

REPORT INFORMATION
  Report Type: Report from Study
  Country: IT (occurrence: IT)
  Receive Date: 20250516
  Receipt Date: 20250612
  Transmission Date: 20250716
  Serious: Yes (Other)
  Sender: GALPHARM INTERNATIONAL
  Company Number: IT-PERRIGO-25IT005840

PATIENT
  Age: 34 Year
  Sex: Female
  Weight: 53 kg

DRUGS (1)
  1. ULIPRISTAL ACETATE [Suspect]
     Active Substance: ULIPRISTAL ACETATE
     Indication: Post coital contraception
     Route: 048
     Dates: start: 20250328, end: 20250328

REACTIONS (3)
  - Abortion induced [Recovered/Resolved]
  - Ectopic pregnancy [Recovered/Resolved with Sequelae]
  - Pregnancy after post coital contraception [Recovered/Resolved with Sequelae]

NARRATIVE: CASE EVENT DATE: 20250429
